FAERS Safety Report 13126318 (Version 1)
Quarter: 2017Q1

REPORT INFORMATION
  Report Type: Spontaneous
  Country: CN (occurrence: CN)
  Receive Date: 20170118
  Receipt Date: 20170118
  Transmission Date: 20170428
  Serious: Yes (Life-Threatening)
  Sender: FDA-Public Use
  Company Number: CN-BAYER-2017-010029

PATIENT
  Age: 78 Year
  Sex: Male
  Weight: 71 kg

DRUGS (1)
  1. AVELOX [Suspect]
     Active Substance: MOXIFLOXACIN HYDROCHLORIDE
     Indication: PYREXIA
     Dosage: 400 MG, QD
     Route: 041
     Dates: start: 20161009, end: 20161011

REACTIONS (5)
  - Delusion [Recovering/Resolving]
  - Mania [Recovering/Resolving]
  - Suicidal ideation [Recovering/Resolving]
  - Agitation [Recovering/Resolving]
  - Irritability [Recovering/Resolving]

NARRATIVE: CASE EVENT DATE: 20161011
